FAERS Safety Report 17942744 (Version 1)
Quarter: 2020Q2

REPORT INFORMATION
  Report Type: Spontaneous
  Country: NO (occurrence: NO)
  Receive Date: 20200625
  Receipt Date: 20200625
  Transmission Date: 20200714
  Serious: Yes (Other)
  Sender: FDA-Public Use
  Company Number: NO-CELLTRION INC.-2019NO022733

PATIENT

DRUGS (7)
  1. USTEKINUMAB [Suspect]
     Active Substance: USTEKINUMAB
     Dosage: EVERY 8-12 WEEKS (IN COMBINATION WITH INFLIXIMAB)
  2. AZATHIOPRINE. [Concomitant]
     Active Substance: AZATHIOPRINE
     Dosage: UNK
  3. INFLIXIMAB (UNKNOWN) [Suspect]
     Active Substance: INFLIXIMAB
     Indication: CROHN^S DISEASE
     Dosage: TREATED WITH INFLIXIMAB FOR A MEDIAN OF 2 YEARS (RANGE 7 MONTHS TO 7 YEARS)
     Route: 065
  4. INFLIXIMAB (UNKNOWN) [Suspect]
     Active Substance: INFLIXIMAB
     Dosage: INFLIXIMAB MONOTHERAPY
  5. INFLIXIMAB (UNKNOWN) [Suspect]
     Active Substance: INFLIXIMAB
     Dosage: REINTRODUCTION IN COMBINATION WITH USTEKINUMAB; EVERY 6-8 WEEKS
  6. INFLIXIMAB (UNKNOWN) [Suspect]
     Active Substance: INFLIXIMAB
     Dosage: INFLXIMAB IN COMBINATION WITH USTEKINUMAB
  7. USTEKINUMAB [Suspect]
     Active Substance: USTEKINUMAB
     Indication: CROHN^S DISEASE
     Dosage: INDUCTION REGIMEN OF WEEKLY INJECTIONS FOR 4 WEEKS, AND EVERY 8 WEEKS THEREAFTER
     Route: 058

REACTIONS (4)
  - Female genital tract fistula [Unknown]
  - Psoriasis [Unknown]
  - Crohn^s disease [Unknown]
  - Abscess [Unknown]
